FAERS Safety Report 5463548-7 (Version None)
Quarter: 2007Q3

REPORT INFORMATION
  Report Type: 
  Country: None (occurrence: None)
  Receive Date: 20070919
  Receipt Date: 20070830
  Transmission Date: 20080115
  Serious: Yes (Disabling, Other)
  Sender: FDA-Public Use
  Company Number: IMP_03057_2007

PATIENT
  Sex: Female

DRUGS (1)
  1. BUDEPRION 300 MG (NOT SPECIFIED) [Suspect]
     Indication: POSTPARTUM DEPRESSION
     Dosage: (300 MG QD ORAL)
     Route: 048
     Dates: start: 20070701, end: 20070723

REACTIONS (11)
  - AGGRESSION [None]
  - DEPRESSION [None]
  - DIZZINESS [None]
  - DRUG INEFFECTIVE [None]
  - FATIGUE [None]
  - FOOD CRAVING [None]
  - IMPAIRED WORK ABILITY [None]
  - MOBILITY DECREASED [None]
  - PHARMACEUTICAL PRODUCT COMPLAINT [None]
  - SELF-INJURIOUS IDEATION [None]
  - STOMACH DISCOMFORT [None]
